FAERS Safety Report 4468419-0 (Version None)
Quarter: 2004Q4

REPORT INFORMATION
  Report Type: 
  Country: None (occurrence: None)
  Receive Date: 20041007
  Receipt Date: 20040818
  Transmission Date: 20050328
  Serious: Yes (Life-Threatening, Hospitalization, Disabling)
  Sender: FDA-Public Use
  Company Number: PHNU2004DE02935

PATIENT
  Age: 0 Day
  Weight: 1800 kg

DRUGS (12)
  1. CAFERGOT PB [Suspect]
     Dosage: UNK, UNK
     Route: 064
     Dates: start: 19880101, end: 19880101
  2. VALIUM [Concomitant]
     Route: 064
  3. HEPARIN [Concomitant]
     Route: 064
  4. TRAMAL [Concomitant]
     Route: 064
  5. PARTUSISTEN [Concomitant]
     Route: 064
  6. TEMGESIC ^ESSEX PHARMA^ [Concomitant]
     Route: 064
  7. MAGNESIUM [Concomitant]
     Route: 064
  8. STEROFUNDIN [Concomitant]
     Route: 064
  9. MEZLOCILLIN [Concomitant]
     Route: 064
  10. ACETAMINOPHEN [Concomitant]
     Route: 064
  11. CELESTAN [Concomitant]
     Route: 064
  12. ACETYLSALICYLIC ACID [Concomitant]
     Route: 064

REACTIONS (9)
  - ACIDOSIS [None]
  - APGAR SCORE LOW [None]
  - BASE EXCESS NEGATIVE [None]
  - BLOOD PH DECREASED [None]
  - BRAIN DAMAGE [None]
  - DRUG EXPOSURE DURING PREGNANCY [None]
  - GENERAL PHYSICAL HEALTH DETERIORATION [None]
  - HYPOXIA [None]
  - PREMATURE BABY [None]
